FAERS Safety Report 19444140 (Version 1)
Quarter: 2021Q2

REPORT INFORMATION
  Report Type: Spontaneous
  Country: GB (occurrence: GB)
  Receive Date: 20210621
  Receipt Date: 20210621
  Transmission Date: 20210717
  Serious: Yes (Life-Threatening, Hospitalization)
  Sender: FDA-Public Use
  Company Number: GB-TEVA-2021-GB-1923754

PATIENT
  Age: 72 Year
  Sex: Male
  Weight: 77 kg

DRUGS (10)
  1. PRIADEL [Concomitant]
     Active Substance: LITHIUM
     Dosage: 1 GRAM DAILY; IN THE EVENING
     Dates: start: 20200203
  2. COLECALCIFEROL [Concomitant]
     Active Substance: CHOLECALCIFEROL
     Dosage: 4 DOSAGE FORMS DAILY;
     Dates: start: 20200203
  3. PIOGLITAZONE. [Concomitant]
     Active Substance: PIOGLITAZONE
     Dosage: 1 DOSAGE FORMS DAILY;
     Dates: start: 20200213
  4. SIMVASTATIN. [Concomitant]
     Active Substance: SIMVASTATIN
     Indication: BLOOD CHOLESTEROL INCREASED
     Dosage: 1 DOSAGE FORMS DAILY; EVERY NIGHT
     Dates: start: 20200203
  5. RISPERIDONE. [Suspect]
     Active Substance: RISPERIDONE
     Dosage: 1 DOSAGE FORMS DAILY; AT NIGHT
     Dates: start: 20210128
  6. GLUCOPHAGE [Concomitant]
     Active Substance: METFORMIN HYDROCHLORIDE
     Dosage: 2 DOSAGE FORMS DAILY;
     Dates: start: 20210323
  7. LAXIDO [Concomitant]
     Active Substance: POLYETHYLENE GLYCOL 3350\POTASSIUM CHLORIDE\SODIUM BICARBONATE\SODIUM CHLORIDE
     Dosage: TAKE ONE TWICE A DAY WHEN REQUIRED
     Dates: start: 20210608
  8. METFORMIN [Concomitant]
     Active Substance: METFORMIN HYDROCHLORIDE
     Dosage: 4 DOSAGE FORMS DAILY; WITH BREAKFAST AND EVENING MEAL, 2 DOSAGE FORMS
     Dates: start: 20200203, end: 20210323
  9. RISPERIDONE. [Suspect]
     Active Substance: RISPERIDONE
     Dosage: 2 MG
     Route: 048
     Dates: start: 20210608
  10. SITAGLIPTIN [Concomitant]
     Active Substance: SITAGLIPTIN
     Dosage: 1 DOSAGE FORMS DAILY; INTHE MORNING WITH BREAKFAST FOR DIA
     Dates: start: 20200203

REACTIONS (1)
  - Extrapyramidal disorder [Recovering/Resolving]

NARRATIVE: CASE EVENT DATE: 20210608
